FAERS Safety Report 4340161-6 (Version None)
Quarter: 2004Q2

REPORT INFORMATION
  Report Type: 
  Country: None (occurrence: None)
  Receive Date: 20040416
  Receipt Date: 20040416
  Transmission Date: 20050107
  Serious: Yes (Other)
  Sender: FDA-Public Use
  Company Number: None

PATIENT
  Age: 4 Year
  Sex: Male
  Weight: 18.1439 kg

DRUGS (2)
  1. DEXTRO AMPHETAMINE SULFATE TAB [Suspect]
     Indication: DISTURBANCE IN ATTENTION
     Dosage: 5 MG PO QAM 2.5 MG PO Q 1 PM; STARTED TAPER UP 1/20/04
     Route: 048
  2. BACITRACIN TOPICAL OINTMENT [Concomitant]

REACTIONS (3)
  - DYSTONIA [None]
  - HALLUCINATION, VISUAL [None]
  - TONGUE DISORDER [None]
